FAERS Safety Report 7405626-9 (Version None)
Quarter: 2011Q2

REPORT INFORMATION
  Report Type: 
  Country: None (occurrence: None)
  Receive Date: 20110411
  Receipt Date: 20110408
  Transmission Date: 20111010
  Serious: Yes (Death)
  Sender: FDA-Public Use
  Company Number: DE-SHIRE-SPV1-2011-00577

PATIENT
  Sex: Male

DRUGS (2)
  1. ELAPRASE [Suspect]
     Dosage: 12 MG, 1X/WEEK
     Route: 041
     Dates: start: 20090720, end: 20100207
  2. ELAPRASE [Suspect]
     Indication: MUCOPOLYSACCHARIDOSIS II
     Dosage: 18 MG, 1X/WEEK
     Route: 041
     Dates: start: 20100208

REACTIONS (1)
  - DEATH [None]
